FAERS Safety Report 9965976 (Version 1)
Quarter: 2014Q1

REPORT INFORMATION
  Report Type: Report from Study
  Country: US (occurrence: US)
  Receive Date: 20140305
  Receipt Date: 20140305
  Transmission Date: 20141002
  Serious: No
  Sender: FDA-Public Use
  Company Number: US-ABBVIE-13P-163-1123915-00

PATIENT
  Age: 33 Year
  Sex: Male
  Weight: 90.8 kg

DRUGS (2)
  1. HUMIRA [Suspect]
     Indication: PSORIATIC ARTHROPATHY
     Dates: start: 201303
  2. NAPROXEN [Concomitant]
     Indication: PSORIATIC ARTHROPATHY

REACTIONS (1)
  - Injection site bruising [Not Recovered/Not Resolved]
